FAERS Safety Report 5787803-6 (Version None)
Quarter: 2008Q2

REPORT INFORMATION
  Report Type: 
  Country: None (occurrence: None)
  Receive Date: 20080625
  Receipt Date: 20080616
  Transmission Date: 20081010
  Serious: Yes (Other)
  Sender: FDA-Public Use
  Company Number: PHNU2007DE03415

PATIENT
  Age: 64 Year
  Sex: Female

DRUGS (7)
  1. RASILEZ [Suspect]
     Indication: HYPERTENSION
     Dates: start: 20071005
  2. RASILEZ [Suspect]
  3. TORSEMIDE [Concomitant]
     Dosage: 1 DF, QD
  4. PRESOMEN [Concomitant]
     Dosage: 0.3 MG/D
  5. SIMVADURA [Concomitant]
     Dosage: 0.5 DF/D
  6. LEVOTHYROXINE SODIUM [Concomitant]
     Dosage: 1 DF, QD
  7. OXYGESIC [Concomitant]
     Dosage: 20 MG, BID

REACTIONS (1)
  - BLOOD PRESSURE INCREASED [None]
